FAERS Safety Report 25679940 (Version 1)
Quarter: 2025Q3

REPORT INFORMATION
  Report Type: Spontaneous
  Country: GB (occurrence: GB)
  Receive Date: 20250814
  Receipt Date: 20250814
  Transmission Date: 20251021
  Serious: Yes (Death, Hospitalization, Other)
  Sender: ACCORD
  Company Number: None

PATIENT
  Age: 75 Year
  Sex: Female

DRUGS (4)
  1. ATORVASTATIN [Suspect]
     Active Substance: ATORVASTATIN
     Indication: Product used for unknown indication
     Dates: start: 20250416
  2. RAMIPRIL [Concomitant]
     Active Substance: RAMIPRIL
  3. OMEPRAZOLE [Concomitant]
     Active Substance: OMEPRAZOLE
  4. LERCANIDIPINE [Concomitant]
     Active Substance: LERCANIDIPINE

REACTIONS (5)
  - Malaise [Unknown]
  - Asthenia [Unknown]
  - Muscle fatigue [Unknown]
  - Myasthenia gravis crisis [Fatal]
  - Abnormal loss of weight [Unknown]

NARRATIVE: CASE EVENT DATE: 20250420
